FAERS Safety Report 8387777-8 (Version None)
Quarter: 2012Q2

REPORT INFORMATION
  Report Type: 
  Country: None (occurrence: None)
  Receive Date: 20120525
  Receipt Date: 20120517
  Transmission Date: 20120825
  Serious: Yes (Hospitalization)
  Sender: FDA-Public Use
  Company Number: JP-GLAXOSMITHKLINE-B0645357A

PATIENT
  Sex: Female

DRUGS (6)
  1. AMARYL [Concomitant]
     Indication: TYPE 2 DIABETES MELLITUS
     Dosage: 1MG PER DAY
     Route: 048
     Dates: end: 20090801
  2. METFORMIN HCL [Concomitant]
     Indication: TYPE 2 DIABETES MELLITUS
     Dosage: 500MG PER DAY
     Route: 048
     Dates: start: 20090324, end: 20090801
  3. MICARDIS [Concomitant]
     Indication: HYPERTENSION
     Dosage: 40MG PER DAY
     Route: 048
     Dates: end: 20090801
  4. GLUCOBAY [Concomitant]
     Indication: TYPE 2 DIABETES MELLITUS
     Dosage: 150MG PER DAY
     Route: 048
     Dates: end: 20090801
  5. VALTREX [Suspect]
     Indication: HERPES ZOSTER
     Dosage: 3000MG PER DAY
     Route: 048
     Dates: start: 20090728, end: 20090731
  6. NORVASC [Concomitant]
     Indication: HYPERTENSION
     Dosage: 5MG PER DAY
     Route: 048
     Dates: end: 20090801

REACTIONS (9)
  - RENAL IMPAIRMENT [None]
  - DECREASED APPETITE [None]
  - DYSARTHRIA [None]
  - BLOOD CREATININE INCREASED [None]
  - MALAISE [None]
  - ENCEPHALOPATHY [None]
  - DIZZINESS [None]
  - RENAL FAILURE ACUTE [None]
  - VOMITING [None]
